FAERS Safety Report 8391014-8 (Version None)
Quarter: 2012Q2

REPORT INFORMATION
  Report Type: 
  Country: None (occurrence: None)
  Receive Date: 20120529
  Receipt Date: 20120517
  Transmission Date: 20120825
  Serious: Yes (Other)
  Sender: FDA-Public Use
  Company Number: PL-UCBSA-049762

PATIENT
  Age: 54 Year
  Sex: Female
  Weight: 53 kg

DRUGS (7)
  1. METHYLPREDNISOLONE [Concomitant]
     Dosage: DAILY DOSE: 4 MG
  2. METHYLPREDNISOLONE [Concomitant]
     Dosage: DAILY DOSE: 2 MG
  3. METHOTREXATE [Concomitant]
     Dosage: HIGHER DOSE
     Route: 058
  4. METHOTREXATE [Concomitant]
     Route: 058
  5. CIMZIA [Suspect]
     Indication: RHEUMATOID ARTHRITIS
     Route: 058
     Dates: start: 20110915
  6. NALTREXONE HYDROCHLORIDE [Concomitant]
     Route: 058
  7. METHYLPREDNISOLONE [Concomitant]
     Dosage: DAILY DOSE: 4 MG

REACTIONS (4)
  - ASTHENIA [None]
  - ERYTHEMA [None]
  - SYNCOPE [None]
  - CHEST PAIN [None]
